FAERS Safety Report 9096941 (Version 1)
Quarter: 2013Q1

REPORT INFORMATION
  Report Type: Spontaneous
  Country: US (occurrence: None)
  Receive Date: 20130124
  Receipt Date: 20130124
  Transmission Date: 20140127
  Serious: Yes (Death, Other)
  Sender: FDA-Public Use
  Company Number: CL-465-2013

PATIENT
  Age: 68 Year
  Sex: Female

DRUGS (1)
  1. METRONIDAZOLE UNK [Suspect]
     Indication: CLOSTRIDIUM DIFFICILE COLITIS

REACTIONS (4)
  - Pulmonary embolism [None]
  - Clostridium difficile colitis [None]
  - Condition aggravated [None]
  - Drug resistance [None]
